FAERS Safety Report 7191692-5 (Version None)
Quarter: 2010Q4

REPORT INFORMATION
  Report Type: 
  Country: None (occurrence: None)
  Receive Date: 20101221
  Receipt Date: 20101221
  Transmission Date: 20110411
  Serious: Yes (Other)
  Sender: FDA-Public Use
  Company Number: None

PATIENT
  Sex: Female

DRUGS (15)
  1. ALENDRONATE 70MG ALENDRONATE [Suspect]
     Indication: OSTEOPOROSIS
     Dosage: 70MG ONE PO QWEEK
     Route: 048
     Dates: start: 20050101, end: 20100101
  2. LASIX [Concomitant]
  3. CARTIA XT [Concomitant]
  4. COUMADIN [Concomitant]
  5. SPIRONOLACTONE [Concomitant]
  6. EFFEXOR [Concomitant]
  7. MECLIZINE [Concomitant]
  8. COREG [Concomitant]
  9. LORTAB [Concomitant]
  10. ASA [Concomitant]
  11. CA + [Concomitant]
  12. ACIPHEX [Concomitant]
  13. BOSENTAN [Concomitant]
  14. PRAVACHOL [Concomitant]
  15. SYMBICORT [Concomitant]

REACTIONS (2)
  - OSTEOMYELITIS [None]
  - OSTEONECROSIS [None]
